FAERS Safety Report 19994293 (Version 1)
Quarter: 2021Q4

REPORT INFORMATION
  Report Type: Report from Study
  Country: BR (occurrence: BR)
  Receive Date: 20211025
  Receipt Date: 20211025
  Transmission Date: 20220304
  Serious: Yes (Other)
  Sender: FDA-Public Use
  Company Number: BR-NOVARTISPH-NVSC2021BR241930

PATIENT
  Age: 65 Year
  Sex: Female

DRUGS (3)
  1. SIMVASTATIN [Suspect]
     Active Substance: SIMVASTATIN
     Indication: Dyslipidaemia
     Dosage: 20 MG, QD
     Route: 065
  2. LOSARTAN [Suspect]
     Active Substance: LOSARTAN
     Indication: Hypertension
     Dosage: 50 MG, QD
     Route: 065
  3. HYDROCHLOROTHIAZIDE [Concomitant]
     Active Substance: HYDROCHLOROTHIAZIDE
     Indication: Hypertension
     Dosage: 25 MG, QD
     Route: 065

REACTIONS (7)
  - Myeloid leukaemia [Unknown]
  - Hypothyroidism [Unknown]
  - Asthenia [Unknown]
  - Malaise [Unknown]
  - Abdominal pain [Unknown]
  - Full blood count abnormal [Unknown]
  - Splenomegaly [Unknown]
